FAERS Safety Report 25356948 (Version 4)
Quarter: 2025Q3

REPORT INFORMATION
  Report Type: Spontaneous
  Country: US (occurrence: US)
  Receive Date: 20250526
  Receipt Date: 20250916
  Transmission Date: 20251021
  Serious: Yes (Other)
  Sender: NOVARTIS
  Company Number: US-002147023-NVSC2025US083668

PATIENT

DRUGS (1)
  1. PLUVICTO [Suspect]
     Active Substance: LUTETIUM LU-177 VIPIVOTIDE TETRAXETAN
     Indication: Product used for unknown indication
     Route: 065

REACTIONS (2)
  - General physical health deterioration [Recovering/Resolving]
  - Anaemia [Unknown]

NARRATIVE: CASE EVENT DATE: 20250519
